FAERS Safety Report 5150449-7 (Version None)
Quarter: 2006Q4

REPORT INFORMATION
  Report Type: 
  Country: None (occurrence: None)
  Receive Date: 20061108
  Receipt Date: 20061102
  Transmission Date: 20070319
  Serious: Yes (Hospitalization)
  Sender: FDA-Public Use
  Company Number: FRWYE452809DEC03

PATIENT
  Age: 60 Year
  Sex: Female

DRUGS (2)
  1. RAPAMUNE [Suspect]
     Indication: PROPHYLAXIS AGAINST TRANSPLANT REJECTION
     Dosage: 15 MG 1X PER 1 DAY, ORAL
     Route: 048
     Dates: start: 20031106, end: 20031107
  2. CELLCEPT [Suspect]
     Indication: PROPHYLAXIS AGAINST TRANSPLANT REJECTION
     Dosage: ORAL
     Route: 048
     Dates: end: 20031201

REACTIONS (13)
  - ACUTE PULMONARY OEDEMA [None]
  - ATRIAL HYPERTROPHY [None]
  - COMPLICATIONS OF TRANSPLANT SURGERY [None]
  - COMPLICATIONS OF TRANSPLANTED KIDNEY [None]
  - HAEMODIALYSIS [None]
  - OVERDOSE [None]
  - PANCYTOPENIA [None]
  - PLEURAL EFFUSION [None]
  - PSEUDOMEMBRANOUS COLITIS [None]
  - PSEUDOMONAL SEPSIS [None]
  - RESPIRATORY DISTRESS [None]
  - URINARY TRACT INFECTION PSEUDOMONAL [None]
  - VENTRICULAR HYPERTROPHY [None]
